FAERS Safety Report 6856682-8 (Version None)
Quarter: 2010Q3

REPORT INFORMATION
  Report Type: 
  Country: None (occurrence: None)
  Receive Date: 20100716
  Receipt Date: 20100716
  Transmission Date: 20110219
  Serious: No
  Sender: FDA-Public Use
  Company Number: None

PATIENT
  Sex: Female
  Weight: 59.1 kg

DRUGS (1)
  1. ZINCATE CAPSULE [Suspect]
     Indication: POLYURIA
     Dosage: 1 220 MG CAPSULE TWICE DAILY ORAL
     Route: 048
     Dates: start: 20100708, end: 20100709

REACTIONS (4)
  - DIZZINESS [None]
  - DYSPEPSIA [None]
  - DYSPNOEA [None]
  - URTICARIA [None]
